FAERS Safety Report 5819179-X (Version None)
Quarter: 2008Q3

REPORT INFORMATION
  Report Type: 
  Country: None (occurrence: None)
  Receive Date: 20080723
  Receipt Date: 20080718
  Transmission Date: 20090109
  Serious: Yes (Hospitalization)
  Sender: FDA-Public Use
  Company Number: B0525033A

PATIENT
  Age: 11 Year
  Sex: Female

DRUGS (3)
  1. AMOXICILLIN TRIHYDRATE [Suspect]
     Indication: STREPTOCOCCAL INFECTION
     Dosage: 250MG THREE TIMES PER DAY
     Route: 048
     Dates: start: 20080527, end: 20080606
  2. PL [Concomitant]
     Indication: STREPTOCOCCAL INFECTION
     Dosage: 1G TWICE PER DAY
     Route: 048
     Dates: start: 20080525, end: 20080527
  3. MUCOSTA [Concomitant]
     Indication: STREPTOCOCCAL INFECTION
     Dosage: 2TAB PER DAY
     Route: 048
     Dates: start: 20080525, end: 20080527

REACTIONS (10)
  - ALANINE AMINOTRANSFERASE INCREASED [None]
  - BLOOD LACTATE DEHYDROGENASE INCREASED [None]
  - ERYTHEMA [None]
  - ERYTHEMA MULTIFORME [None]
  - HEADACHE [None]
  - LIVER DISORDER [None]
  - PAIN [None]
  - PAIN IN EXTREMITY [None]
  - PYREXIA [None]
  - RASH [None]
